FAERS Safety Report 5135239-3 (Version None)
Quarter: 2006Q4

REPORT INFORMATION
  Report Type: 
  Country: None (occurrence: None)
  Receive Date: 20061024
  Receipt Date: 20061024
  Transmission Date: 20070319
  Serious: Yes (Hospitalization)
  Sender: FDA-Public Use
  Company Number: None

PATIENT
  Sex: Female
  Weight: 45.0422 kg

DRUGS (3)
  1. ADRIAMYCIN PFS [Suspect]
     Indication: BREAST CANCER
     Dosage: 60MG/M^2 Q 2 WEEKS X 4 IV
     Route: 042
     Dates: start: 20060831, end: 20061012
  2. CYTOXAN [Suspect]
     Indication: BREAST CANCER
     Dosage: 600 MG/M^2 Q 2 WEEKS X 4 IV
     Route: 042
     Dates: start: 20060831, end: 20061012
  3. NEULASTA [Concomitant]

REACTIONS (11)
  - ASTHENIA [None]
  - BODY TEMPERATURE INCREASED [None]
  - DIARRHOEA [None]
  - FATIGUE [None]
  - HAEMORRHOIDS [None]
  - IMPLANT SITE REACTION [None]
  - PAIN [None]
  - PALPITATIONS [None]
  - PANCYTOPENIA [None]
  - PHARYNGOLARYNGEAL PAIN [None]
  - SYNCOPE [None]
